FAERS Safety Report 5881984-1 (Version None)
Quarter: 2008Q3

REPORT INFORMATION
  Report Type: 
  Country: None (occurrence: None)
  Receive Date: 20080912
  Receipt Date: 20080812
  Transmission Date: 20090109
  Serious: No
  Sender: FDA-Public Use
  Company Number: US-ABBOTT-08P-163-0464284-00

PATIENT
  Sex: Female
  Weight: 49.94 kg

DRUGS (8)
  1. HUMIRA [Suspect]
     Indication: MIXED CONNECTIVE TISSUE DISEASE
     Route: 050
     Dates: start: 20070901, end: 20080101
  2. METHOTREXATE [Concomitant]
     Indication: MIXED CONNECTIVE TISSUE DISEASE
  3. METHOTREXATE [Concomitant]
     Route: 050
  4. PREDNISONE TAB [Concomitant]
     Indication: MIXED CONNECTIVE TISSUE DISEASE
     Route: 048
  5. HYDROXYCHLOROQUINE [Concomitant]
     Indication: MIXED CONNECTIVE TISSUE DISEASE
     Route: 048
  6. FOLIC ACID [Concomitant]
     Indication: DRUG USE FOR UNKNOWN INDICATION
     Route: 048
  7. VITAMIN TAB [Concomitant]
     Indication: VITAMIN SUPPLEMENTATION
  8. CA [Concomitant]
     Indication: MINERAL SUPPLEMENTATION

REACTIONS (4)
  - INFLAMMATION [None]
  - RASH MACULAR [None]
  - RED BLOOD CELL SEDIMENTATION RATE INCREASED [None]
  - SKIN INDURATION [None]
